FAERS Safety Report 19914371 (Version 1)
Quarter: 2021Q4

REPORT INFORMATION
  Report Type: Spontaneous
  Country: SE (occurrence: SE)
  Receive Date: 20211004
  Receipt Date: 20211004
  Transmission Date: 20220303
  Serious: Yes (Other)
  Sender: FDA-Public Use
  Company Number: None

PATIENT
  Age: 58 Year
  Sex: Male

DRUGS (3)
  1. CANDESARTAN [Suspect]
     Active Substance: CANDESARTAN
     Indication: Hypertension
     Dosage: UNK
  2. CANDESARTAN [Suspect]
     Active Substance: CANDESARTAN
     Indication: Protein urine
     Dosage: UNK UNK, QD
     Route: 048
     Dates: start: 20201002
  3. POTASSIUM CHLORIDE [Concomitant]
     Active Substance: POTASSIUM CHLORIDE
     Dosage: UNK
     Route: 048

REACTIONS (1)
  - Oropharyngeal discomfort [Unknown]

NARRATIVE: CASE EVENT DATE: 20210501
